FAERS Safety Report 10437586 (Version 2)
Quarter: 2014Q3

REPORT INFORMATION
  Report Type: Spontaneous
  Country: US (occurrence: US)
  Receive Date: 20140908
  Receipt Date: 20140908
  Transmission Date: 20150326
  Serious: No
  Sender: FDA-Public Use
  Company Number: US-BRISTOL-MYERS SQUIBB COMPANY-20467601

PATIENT
  Age: 55 Year
  Sex: Female

DRUGS (4)
  1. ABILIFY [Suspect]
     Active Substance: ARIPIPRAZOLE
     Indication: MAJOR DEPRESSION
  2. ASPIRIN. [Suspect]
     Active Substance: ASPIRIN
     Indication: MAJOR DEPRESSION
  3. CYMBALTA [Suspect]
     Active Substance: DULOXETINE HYDROCHLORIDE
     Indication: MAJOR DEPRESSION
  4. SEROQUEL [Suspect]
     Active Substance: QUETIAPINE FUMARATE
     Indication: MAJOR DEPRESSION

REACTIONS (4)
  - Urinary tract infection [Unknown]
  - Paraesthesia [Recovered/Resolved]
  - Throat tightness [Unknown]
  - Pharyngitis [Unknown]
